FAERS Safety Report 24386445 (Version 3)
Quarter: 2024Q4

REPORT INFORMATION
  Report Type: Report from Study
  Country: US (occurrence: US)
  Receive Date: 20241002
  Receipt Date: 20241212
  Transmission Date: 20250115
  Serious: Yes (Death, Hospitalization)
  Sender: ABBVIE
  Company Number: US-ABBVIE-5945578

PATIENT
  Age: 94 Year
  Sex: Male
  Weight: 83 kg

DRUGS (2)
  1. IMBRUVICA [Suspect]
     Active Substance: IBRUTINIB
     Indication: Product used for unknown indication
     Dosage: 140 MILLIGRAM
     Route: 048
  2. IMBRUVICA [Suspect]
     Active Substance: IBRUTINIB
     Indication: Product used for unknown indication
     Dosage: FORM STRENGTH 140 MILLIGRAM, START DATE TEXT: UNKNOWN?STOP DATE TEXT: UNKNOWN
     Route: 048

REACTIONS (6)
  - Sepsis [Fatal]
  - Incorrect dose administered [Unknown]
  - Fall [Unknown]
  - Confusional state [Unknown]
  - Atrial fibrillation [Unknown]
  - Bacteraemia [Unknown]
